FAERS Safety Report 18219748 (Version 2)
Quarter: 2021Q1

REPORT INFORMATION
  Report Type: Report from Study
  Country: NL (occurrence: NL)
  Receive Date: 20200901
  Receipt Date: 20210215
  Transmission Date: 20210419
  Serious: Yes (Hospitalization, Other)
  Sender: FDA-Public Use
  Company Number: PHHY2018NL160093

PATIENT
  Sex: Male

DRUGS (3)
  1. SANDOSTATIN LAR DEPOT [Suspect]
     Active Substance: OCTREOTIDE ACETATE
     Indication: NEUROENDOCRINE TUMOUR
     Dosage: 30 MG/2ML, QMO (EVERY 4 WEEKS) (1 PER 4 WEEK),AUTHORIZATION/APPLICATION NUMBER; RVG 18237
     Route: 030
  2. SANDOSTATIN LAR DEPOT [Suspect]
     Active Substance: OCTREOTIDE ACETATE
     Dosage: 30 MG/2ML, QMO (EVERY 4 WEEKS)
     Route: 030
     Dates: start: 20170406
  3. SANDOSTATIN LAR DEPOT [Suspect]
     Active Substance: OCTREOTIDE ACETATE
     Dosage: UNK
     Route: 065
     Dates: start: 20200227

REACTIONS (7)
  - Neuroendocrine tumour [Unknown]
  - Liver function test increased [Unknown]
  - Malignant neoplasm progression [Unknown]
  - Adverse event [Not Recovered/Not Resolved]
  - Device occlusion [Unknown]
  - Abdominal pain [Unknown]
  - Pain [Unknown]
